FAERS Safety Report 13903948 (Version 2)
Quarter: 2017Q3

REPORT INFORMATION
  Report Type: Spontaneous
  Country: US (occurrence: US)
  Receive Date: 20170824
  Receipt Date: 20170926
  Transmission Date: 20171127
  Serious: Yes (Death, Hospitalization)
  Sender: FDA-Public Use
  Company Number: US-BEH-2017082992

PATIENT
  Age: 75 Year
  Sex: Male
  Weight: 63.49 kg

DRUGS (20)
  1. ZEMAIRA [Suspect]
     Active Substance: .ALPHA.1-PROTEINASE INHIBITOR HUMAN
     Indication: ALPHA-1 ANTI-TRYPSIN DEFICIENCY
     Dosage: 60 MG/KG, QW
     Route: 042
     Dates: start: 20150928
  2. ZEMAIRA [Suspect]
     Active Substance: .ALPHA.1-PROTEINASE INHIBITOR HUMAN
     Dosage: UNK
     Route: 042
  3. SERTRALINE [Concomitant]
     Active Substance: SERTRALINE HYDROCHLORIDE
  4. TELMISARTAN. [Concomitant]
     Active Substance: TELMISARTAN
  5. XANAX [Concomitant]
     Active Substance: ALPRAZOLAM
  6. UMECLIDINIUM [Concomitant]
     Active Substance: UMECLIDINIUM BROMIDE
  7. DIPHENHYDRAMINE. [Concomitant]
     Active Substance: DIPHENHYDRAMINE
  8. SODIUM CHLORIDE. [Concomitant]
     Active Substance: SODIUM CHLORIDE
  9. EPIPEN [Concomitant]
     Active Substance: EPINEPHRINE
  10. ASPIRIN. [Concomitant]
     Active Substance: ASPIRIN
  11. ALBUTEROL W/IPRATROPIUM [Concomitant]
     Active Substance: ALBUTEROL\IPRATROPIUM
  12. PANTOPRAZOLE [Concomitant]
     Active Substance: PANTOPRAZOLE
  13. LMX                                /00033401/ [Concomitant]
  14. VENTOLIN [Concomitant]
     Active Substance: ALBUTEROL SULFATE
  15. ADVAIR HFA [Concomitant]
     Active Substance: FLUTICASONE PROPIONATE\SALMETEROL XINAFOATE
  16. ZEMAIRA [Suspect]
     Active Substance: .ALPHA.1-PROTEINASE INHIBITOR HUMAN
     Dosage: UNK
     Route: 042
  17. PREDNISONE. [Concomitant]
     Active Substance: PREDNISONE
  18. ZEMAIRA [Suspect]
     Active Substance: .ALPHA.1-PROTEINASE INHIBITOR HUMAN
     Dosage: 60 MG/KG, QW
     Route: 042
     Dates: start: 20150518, end: 20170919
  19. FUROSEMIDE. [Concomitant]
     Active Substance: FUROSEMIDE
  20. LEVOTHYROXINE. [Concomitant]
     Active Substance: LEVOTHYROXINE

REACTIONS (2)
  - Enterovesical fistula [Fatal]
  - Intestinal perforation [Unknown]

NARRATIVE: CASE EVENT DATE: 2017
